FAERS Safety Report 8604249-3 (Version None)
Quarter: 2012Q3

REPORT INFORMATION
  Report Type: 
  Country: None (occurrence: None)
  Receive Date: 20120807
  Receipt Date: 20120723
  Transmission Date: 20120928
  Serious: Yes (Death, Other)
  Sender: FDA-Public Use
  Company Number: TPA2012A01724

PATIENT
  Age: 65 Year
  Sex: Male

DRUGS (8)
  1. ACTOS [Suspect]
     Indication: TYPE 2 DIABETES MELLITUS
     Dosage: 15 MG, 15 MG, 15 MG, 30 MG, 30 MG, 30 MG, 30 MG, 30 MG
     Dates: start: 20050823
  2. ACTOS [Suspect]
     Indication: TYPE 2 DIABETES MELLITUS
     Dosage: 15 MG, 15 MG, 15 MG, 30 MG, 30 MG, 30 MG, 30 MG, 30 MG
     Dates: start: 20080224
  3. ACTOS [Suspect]
     Indication: TYPE 2 DIABETES MELLITUS
     Dosage: 15 MG, 15 MG, 15 MG, 30 MG, 30 MG, 30 MG, 30 MG, 30 MG
     Dates: start: 20070927
  4. ACTOS [Suspect]
     Indication: TYPE 2 DIABETES MELLITUS
     Dosage: 15 MG, 15 MG, 15 MG, 30 MG, 30 MG, 30 MG, 30 MG, 30 MG
     Dates: start: 20071126
  5. ACTOS [Suspect]
     Indication: TYPE 2 DIABETES MELLITUS
     Dosage: 15 MG, 15 MG, 15 MG, 30 MG, 30 MG, 30 MG, 30 MG, 30 MG
     Dates: start: 20050214
  6. ACTOS [Suspect]
     Indication: TYPE 2 DIABETES MELLITUS
     Dosage: 15 MG, 15 MG, 15 MG, 30 MG, 30 MG, 30 MG, 30 MG, 30 MG
     Dates: start: 20080628
  7. ACTOS [Suspect]
     Indication: TYPE 2 DIABETES MELLITUS
     Dosage: 15 MG, 15 MG, 15 MG, 30 MG, 30 MG, 30 MG, 30 MG, 30 MG
     Dates: start: 20081220
  8. ACTOS [Suspect]
     Indication: TYPE 2 DIABETES MELLITUS
     Dosage: 15 MG, 15 MG, 15 MG, 30 MG, 30 MG, 30 MG, 30 MG, 30 MG
     Dates: start: 20050617

REACTIONS (1)
  - METASTATIC CARCINOMA OF THE BLADDER [None]
